FAERS Safety Report 6871373-5 (Version None)
Quarter: 2010Q3

REPORT INFORMATION
  Report Type: 
  Country: None (occurrence: None)
  Receive Date: 20100723
  Receipt Date: 20100713
  Transmission Date: 20110219
  Serious: Yes (Hospitalization, Disabling, Other)
  Sender: FDA-Public Use
  Company Number: US-PFIZER INC-2009294880

PATIENT
  Sex: Female

DRUGS (6)
  1. CHANTIX [Suspect]
     Indication: SMOKING CESSATION THERAPY
     Dosage: 0.5 MG/1MG, UNK
     Route: 048
     Dates: start: 20061018, end: 20061103
  2. CHANTIX [Suspect]
     Dosage: UNK
     Dates: start: 20070412
  3. EFFEXOR [Concomitant]
     Indication: DEPRESSION
     Dosage: UNK
     Dates: start: 19990101
  4. EFFEXOR [Concomitant]
     Indication: ANXIETY
  5. EFFEXOR [Concomitant]
     Indication: OBSESSIVE-COMPULSIVE DISORDER
  6. KLONOPIN [Concomitant]
     Indication: ANXIETY
     Dosage: UNK
     Dates: start: 19810101

REACTIONS (6)
  - ANXIETY [None]
  - DEPRESSION [None]
  - INTENTIONAL OVERDOSE [None]
  - OBSESSIVE-COMPULSIVE DISORDER [None]
  - PARANOIA [None]
  - SUICIDE ATTEMPT [None]
